FAERS Safety Report 17861877 (Version 1)
Quarter: 2020Q2

REPORT INFORMATION
  Report Type: Spontaneous
  Country: US (occurrence: US)
  Receive Date: 20200604
  Receipt Date: 20200604
  Transmission Date: 20200714
  Serious: No
  Sender: FDA-Public Use
  Company Number: US-AVEDRO-AVE-2019-0511-AE

PATIENT
  Sex: Female

DRUGS (3)
  1. PHOTREXA VISCOUS [Suspect]
     Active Substance: RIBOFLAVIN 5^-PHOSPHATE SODIUM
     Indication: CORNEAL DISORDER
     Route: 047
     Dates: start: 201907, end: 201907
  2. KXL SYSTEM [Suspect]
     Active Substance: DEVICE
     Indication: CORNEAL DISORDER
     Route: 047
     Dates: start: 201907, end: 201907
  3. INTACS [DEVICE] [Suspect]
     Active Substance: DEVICE
     Indication: PRODUCT USED FOR UNKNOWN INDICATION
     Route: 047
     Dates: start: 201910

REACTIONS (2)
  - Eye oedema [Unknown]
  - Application site vesicles [Unknown]

NARRATIVE: CASE EVENT DATE: 2019
